FAERS Safety Report 6190399-0 (Version None)
Quarter: 2009Q2

REPORT INFORMATION
  Report Type: 
  Country: None (occurrence: None)
  Receive Date: 20090514
  Receipt Date: 20090511
  Transmission Date: 20091009
  Serious: Yes (Other)
  Sender: FDA-Public Use
  Company Number: B0573812A

PATIENT
  Sex: Female
  Weight: 88 kg

DRUGS (5)
  1. AVAMYS [Suspect]
     Indication: DRUG USE FOR UNKNOWN INDICATION
     Route: 045
  2. XYZAL [Concomitant]
     Route: 048
  3. LEVOTHYROXINE SODIUM [Concomitant]
     Route: 048
  4. OPTICROM [Concomitant]
     Route: 047
  5. ESTIVAN [Concomitant]
     Dosage: 20MG PER DAY
     Route: 048

REACTIONS (2)
  - ASTHMA [None]
  - DYSPNOEA [None]
